FAERS Safety Report 17200171 (Version 3)
Quarter: 2020Q4

REPORT INFORMATION
  Report Type: Spontaneous
  Country: DE (occurrence: DE)
  Receive Date: 20191226
  Receipt Date: 20201017
  Transmission Date: 20210113
  Serious: Yes (Death, Hospitalization, Other)
  Sender: FDA-Public Use
  Company Number: DE-AUROBINDO-AUR-APL-2019-107394

PATIENT
  Sex: Female
  Weight: 70 kg

DRUGS (4)
  1. LETROZOLE. [Suspect]
     Active Substance: LETROZOLE
     Indication: BREAST CANCER METASTATIC
     Dosage: 2.5 MILLIGRAM, ONCE A DAY
     Route: 048
     Dates: start: 20190712
  2. KISQALI [Suspect]
     Active Substance: RIBOCICLIB
     Indication: BREAST CANCER METASTATIC
     Dosage: 60 MILLIGRAM, ONCE A DAY  (21 DAYS INTAKE, 7 DAYS PAUSE)
     Route: 048
     Dates: start: 20190712, end: 20190815
  3. KISQALI [Suspect]
     Active Substance: RIBOCICLIB
     Dosage: 600 MILLIGRAM, ONCE A DAY (21 DAYS INTAKE, 7 DAYS PAUSE)
     Route: 048
     Dates: start: 20190712, end: 20190815
  4. KISQALI [Suspect]
     Active Substance: RIBOCICLIB
     Dosage: 400 MILLIGRAM, ONCE A DAY (21 DAYS INTAKE, 7 DAYS PAUSE)
     Route: 048
     Dates: start: 20190816

REACTIONS (5)
  - Melaena [Fatal]
  - Haematemesis [Fatal]
  - Hernia [Fatal]
  - Fatigue [Recovered/Resolved]
  - Ascites [Not Recovered/Not Resolved]

NARRATIVE: CASE EVENT DATE: 20190815
